FAERS Safety Report 13813061 (Version 3)
Quarter: 2021Q4

REPORT INFORMATION
  Report Type: Report from Study
  Country: DK (occurrence: DK)
  Receive Date: 20170729
  Receipt Date: 20211022
  Transmission Date: 20220303
  Serious: Yes (Congenital Anomaly, Other)
  Sender: FDA-Public Use
  Company Number: None

PATIENT
  Age: 1 Year

DRUGS (3)
  1. LEVETIRACETAM [Suspect]
     Active Substance: LEVETIRACETAM
     Dosage: DOSE CHANGE IN THE FIRST TRIMESTER
     Route: 064
     Dates: end: 201507
  2. PREGABALIN [Suspect]
     Active Substance: PREGABALIN
     Dosage: DOSE CHANGE IN THE FIRST TRIMESTER
     Route: 064
     Dates: end: 201507
  3. OXCARBAZEPINE [Suspect]
     Active Substance: OXCARBAZEPINE
     Dosage: DOSE CHANGE IN THE FIRST TRIMESTER
     Route: 064
     Dates: end: 201507

REACTIONS (2)
  - Adactyly [Unknown]
  - Foetal exposure during pregnancy [Unknown]
